FAERS Safety Report 4681445-1 (Version None)
Quarter: 2005Q2

REPORT INFORMATION
  Report Type: 
  Country: None (occurrence: None)
  Receive Date: 20050603
  Receipt Date: 20050131
  Transmission Date: 20051028
  Serious: Yes (Hospitalization)
  Sender: FDA-Public Use
  Company Number: FRWYE382631JAN05

PATIENT
  Sex: Female

DRUGS (4)
  1. ENBREL [Suspect]
     Indication: RHEUMATOID ARTHRITIS
     Route: 058
     Dates: end: 20041101
  2. ENBREL [Suspect]
     Route: 058
     Dates: start: 20041101, end: 20041101
  3. LANSOPRAZOLE [Concomitant]
     Dosage: UNKNOWN
  4. NABUMETONE [Concomitant]
     Dosage: UNKNOWN

REACTIONS (5)
  - DISEASE RECURRENCE [None]
  - HYPERSENSITIVITY [None]
  - INFLAMMATION [None]
  - RASH MACULO-PAPULAR [None]
  - RHEUMATOID ARTHRITIS [None]
